FAERS Safety Report 6736099-7 (Version None)
Quarter: 2010Q2

REPORT INFORMATION
  Report Type: 
  Country: None (occurrence: None)
  Receive Date: 20100521
  Receipt Date: 20100519
  Transmission Date: 20101027
  Serious: Yes (Hospitalization, Other)
  Sender: FDA-Public Use
  Company Number: CA-ROCHE-692974

PATIENT
  Sex: Female
  Weight: 57.7 kg

DRUGS (17)
  1. BEVACIZUMAB [Suspect]
     Dosage: DOSE LEVEL:15 MG/KG, FORM: VIALS
     Route: 042
     Dates: start: 20100309, end: 20100511
  2. TRASTUZUMAB [Suspect]
     Dosage: LOADING DOSE
     Route: 042
     Dates: start: 20100309, end: 20100311
  3. TRASTUZUMAB [Suspect]
     Dosage: MAINTENANCE DOSE, DOSE LEVEL:8 MG/KG, FORM: VIALS
     Route: 042
     Dates: start: 20100330
  4. TRASTUZUMAB [Suspect]
     Route: 042
     Dates: end: 20100511
  5. CARBOPLATIN [Suspect]
     Dosage: DOSE LEVEL: 6 AUC, FORM: VIALS, LAST DOSE:09 MARCH . THE THERAPY WAS HOLD ON 11 MAY 2010.
     Route: 042
     Dates: start: 20100309, end: 20100511
  6. DOCETAXEL [Suspect]
     Dosage: DOSE LEVEL:75 MG/M2, FORM: VIALS, LAST DOSE:09 MARCH 2010. THE THERAPY WAS HOLD IN MAY 2010.
     Route: 042
     Dates: start: 20100309, end: 20100511
  7. DIOVAN [Concomitant]
     Dates: start: 20040101
  8. NEUPOGEN [Concomitant]
     Dates: start: 20100310
  9. ASPIRIN [Concomitant]
  10. NORVASC [Concomitant]
     Dates: start: 20100330
  11. ZOFRAN [Concomitant]
     Dates: start: 20100309
  12. DECADRON [Concomitant]
     Dates: start: 20100308
  13. STEMETIL [Concomitant]
     Dates: start: 20100308
  14. CLONAZEPAM [Concomitant]
     Dates: start: 20100507
  15. PRAMIPEXOLE DIHYDROCHLORIDE [Concomitant]
     Dates: start: 20100507
  16. TYLENOL [Concomitant]
     Dates: start: 20100504
  17. METOCLOPRAMIDE [Concomitant]
     Dates: start: 20100401

REACTIONS (5)
  - CLOSTRIDIAL INFECTION [None]
  - DIARRHOEA [None]
  - HYPOMAGNESAEMIA [None]
  - PYREXIA [None]
  - VOMITING [None]
